FAERS Safety Report 6249647-0 (Version None)
Quarter: 2009Q2

REPORT INFORMATION
  Report Type: 
  Country: None (occurrence: None)
  Receive Date: 20090629
  Receipt Date: 20090623
  Transmission Date: 20091009
  Serious: Yes (Hospitalization, Other)
  Sender: FDA-Public Use
  Company Number: US-ELI_LILLY_AND_COMPANY-US200906005546

PATIENT
  Sex: Female

DRUGS (10)
  1. HUMULIN R [Suspect]
     Dosage: UNK, AS NEEDED
     Dates: start: 20090528
  2. HUMULIN R [Suspect]
     Dosage: 12 U, UNK
     Dates: start: 20090620
  3. HUMULIN R [Suspect]
     Dosage: 9 U, UNK
     Dates: start: 20090620
  4. HUMULIN R [Suspect]
     Dosage: 12 U, UNK
     Dates: start: 20090622
  5. HUMULIN R [Suspect]
     Dosage: 10 U, UNK
     Dates: start: 20090622
  6. HUMULIN R [Suspect]
     Dosage: 12 U, UNK
     Dates: start: 20090623
  7. HUMALOG MIX 75/25 [Suspect]
     Dosage: UNK, UNK
     Dates: start: 20080101
  8. HUMALOG [Suspect]
     Dates: start: 20020101
  9. HUMULIN N [Suspect]
     Dates: start: 20020101, end: 20080101
  10. NITRO                              /00003201/ [Concomitant]
     Indication: CARDIAC DISORDER

REACTIONS (19)
  - ANGINA PECTORIS [None]
  - BLOOD GLUCOSE INCREASED [None]
  - BLOOD PRESSURE DECREASED [None]
  - CHEST DISCOMFORT [None]
  - CHEST PAIN [None]
  - DIZZINESS [None]
  - DRUG HYPERSENSITIVITY [None]
  - DRUG INEFFECTIVE [None]
  - DYSPNOEA [None]
  - FEAR OF EATING [None]
  - FEELING ABNORMAL [None]
  - GAIT DISTURBANCE [None]
  - HYPERSENSITIVITY [None]
  - HYPOGLYCAEMIC UNCONSCIOUSNESS [None]
  - LIVER DISORDER [None]
  - MALAISE [None]
  - NAUSEA [None]
  - NEUROPATHY PERIPHERAL [None]
  - SHOCK HYPOGLYCAEMIC [None]
